FAERS Safety Report 5907541-6 (Version None)
Quarter: 2008Q3

REPORT INFORMATION
  Report Type: 
  Country: None (occurrence: None)
  Receive Date: 20080929
  Receipt Date: 20080919
  Transmission Date: 20090109
  Serious: Yes (Other)
  Sender: FDA-Public Use
  Company Number: 2008JP004466

PATIENT

DRUGS (4)
  1. FK506 (TACROLIUMS) FORMULATION UNKNOWN [Suspect]
     Indication: RENAL TRANSPLANT
  2. METHYLPREDNISOLONE [Suspect]
     Dosage: 500 MG, /D, IV NOS
     Route: 042
  3. PREDNISOLONE [Suspect]
     Dosage: 50 MG, /D, IV NOS
     Route: 042
  4. PREDNISOLONE [Suspect]
     Dosage: 50 MG, /D, ORAL, 10 MG, /D, ORAL
     Route: 048

REACTIONS (1)
  - OSTEONECROSIS [None]
